FAERS Safety Report 18433293 (Version 1)
Quarter: 2020Q4

REPORT INFORMATION
  Report Type: Spontaneous
  Country: GB (occurrence: GB)
  Receive Date: 20201027
  Receipt Date: 20201027
  Transmission Date: 20210114
  Serious: Yes (Other)
  Sender: FDA-Public Use
  Company Number: GB-TEVA-2020-GB-1840900

PATIENT
  Age: 73 Year
  Sex: Female

DRUGS (3)
  1. LITHIUM. [Suspect]
     Active Substance: LITHIUM
     Route: 065
  2. FUROSEMIDE. [Interacting]
     Active Substance: FUROSEMIDE
     Route: 065
  3. RAMIPRIL. [Suspect]
     Active Substance: RAMIPRIL
     Route: 065

REACTIONS (14)
  - Rectal prolapse [Unknown]
  - Toxicity to various agents [Unknown]
  - Glomerular filtration rate decreased [Unknown]
  - Rectal haemorrhage [Unknown]
  - Malaise [Unknown]
  - Fatigue [Unknown]
  - Condition aggravated [Unknown]
  - Electrocardiogram QT prolonged [Unknown]
  - Diarrhoea [Unknown]
  - Extrasystoles [Unknown]
  - Drug interaction [Unknown]
  - Asthenia [Unknown]
  - Confusional state [Unknown]
  - Electrocardiogram T wave abnormal [Unknown]
